FAERS Safety Report 5466863-6 (Version None)
Quarter: 2007Q3

REPORT INFORMATION
  Report Type: 
  Country: None (occurrence: None)
  Receive Date: 20070920
  Receipt Date: 20070904
  Transmission Date: 20080115
  Serious: Yes (Hospitalization)
  Sender: FDA-Public Use
  Company Number: S07-FRA-02701-01

PATIENT
  Age: 35 Year
  Sex: Female
  Weight: 85 kg

DRUGS (4)
  1. ESCITALOPRAM [Suspect]
     Indication: MAJOR DEPRESSION
     Dosage: 10 MG BID PO
     Route: 048
     Dates: start: 20070201, end: 20070320
  2. ABILIFY [Suspect]
     Indication: PSYCHOTIC DISORDER
     Dosage: 10 MG QD PO
     Route: 048
     Dates: start: 20070301, end: 20070314
  3. NOCTRAN [Concomitant]
  4. TERCIAN (CYAMEMAZINE) [Concomitant]

REACTIONS (2)
  - HEPATIC STEATOSIS [None]
  - HEPATITIS [None]
